FAERS Safety Report 5201771-7 (Version None)
Quarter: 2007Q1

REPORT INFORMATION
  Report Type: 
  Country: None (occurrence: None)
  Receive Date: 20070108
  Receipt Date: 20070103
  Transmission Date: 20070707
  Serious: Yes (Congenital Anomaly)
  Sender: FDA-Public Use
  Company Number: US-MERCK-0701USA00370

PATIENT

DRUGS (1)
  1. INDOCIN [Suspect]
     Route: 064

REACTIONS (1)
  - CARDIAC DISORDER [None]
